FAERS Safety Report 9853445 (Version 2)
Quarter: 2014Q1

REPORT INFORMATION
  Report Type: Spontaneous
  Country: US (occurrence: US)
  Receive Date: 20140129
  Receipt Date: 20140327
  Transmission Date: 20141002
  Serious: Yes (Hospitalization)
  Sender: FDA-Public Use
  Company Number: US-GLAXOSMITHKLINE-A1057866A

PATIENT
  Sex: Female

DRUGS (17)
  1. VENTOLIN [Suspect]
     Indication: CHRONIC OBSTRUCTIVE PULMONARY DISEASE
     Dosage: 2PUFF AS REQUIRED
     Route: 055
     Dates: start: 1999
  2. ALBUTEROL [Suspect]
     Indication: CHRONIC OBSTRUCTIVE PULMONARY DISEASE
     Route: 055
  3. ALBUTEROL [Suspect]
     Indication: CHRONIC OBSTRUCTIVE PULMONARY DISEASE
     Route: 055
  4. NEURONTIN [Concomitant]
  5. OXYCONTIN [Concomitant]
  6. PREMARIN [Concomitant]
  7. TOPROL [Concomitant]
  8. LASIX [Concomitant]
  9. SEROQUEL [Concomitant]
  10. TEMAZEPAM [Concomitant]
  11. BUTALBITAL [Concomitant]
  12. ADVAIR [Concomitant]
  13. DULERA [Concomitant]
  14. MAGNESIUM [Concomitant]
  15. PRILOSEC [Concomitant]
  16. ZANTAC [Concomitant]
  17. SEIZURE MEDICATION [Concomitant]

REACTIONS (5)
  - Dyspnoea [Unknown]
  - Back injury [Unknown]
  - Drug ineffective [Unknown]
  - Overdose [Unknown]
  - Product quality issue [Unknown]
